FAERS Safety Report 12530823 (Version 1)
Quarter: 2016Q3

REPORT INFORMATION
  Report Type: Spontaneous
  Country: JP (occurrence: JP)
  Receive Date: 20160706
  Receipt Date: 20160706
  Transmission Date: 20161109
  Serious: Yes (Other)
  Sender: FDA-Public Use
  Company Number: JP-TEVA-673132ISR

PATIENT
  Age: 21 Year
  Sex: Female

DRUGS (5)
  1. PROCARBAZINE [Suspect]
     Active Substance: PROCARBAZINE
     Indication: CASTLEMAN^S DISEASE
  2. PREDNISOLONE. [Suspect]
     Active Substance: PREDNISOLONE
     Indication: CASTLEMAN^S DISEASE
  3. RITUXIMAB [Suspect]
     Active Substance: RITUXIMAB
     Indication: CASTLEMAN^S DISEASE
  4. ETOPOSIDE. [Suspect]
     Active Substance: ETOPOSIDE
     Indication: CASTLEMAN^S DISEASE
  5. CYCLOPHOSPHAMIDE. [Suspect]
     Active Substance: CYCLOPHOSPHAMIDE
     Indication: CASTLEMAN^S DISEASE

REACTIONS (3)
  - Sinus bradycardia [Recovered/Resolved]
  - Sinus node dysfunction [Recovered/Resolved]
  - Syncope [Recovered/Resolved]
